FAERS Safety Report 4497893-9 (Version None)
Quarter: 2004Q4

REPORT INFORMATION
  Report Type: 
  Country: None (occurrence: None)
  Receive Date: 20041104
  Receipt Date: 20041021
  Transmission Date: 20050328
  Serious: Yes (Death)
  Sender: FDA-Public Use
  Company Number: 2004230243JP

PATIENT
  Age: 64 Year
  Sex: Male

DRUGS (7)
  1. CAMPTOSAR [Suspect]
     Indication: COLON CANCER
     Dosage: SEE IMAGE
     Route: 041
     Dates: start: 20040608, end: 20040608
  2. CAMPTOSAR [Suspect]
     Indication: COLON CANCER
     Dosage: SEE IMAGE
     Route: 041
     Dates: start: 20040615, end: 20040615
  3. DECADRON [Concomitant]
  4. KYTRIL [Concomitant]
  5. FLUMARIN (FLOMOXEF SODIUM) [Concomitant]
  6. CEPHARANTHIN (CEPHARANTHINE) [Concomitant]
  7. GRAN [Concomitant]

REACTIONS (27)
  - ANAEMIA [None]
  - AORTIC ATHEROSCLEROSIS [None]
  - BONE MARROW DEPRESSION [None]
  - COLITIS ULCERATIVE [None]
  - COLLAPSE OF LUNG [None]
  - DILATATION VENTRICULAR [None]
  - HEPATIC STEATOSIS [None]
  - INFECTION [None]
  - LIVER DISORDER [None]
  - METASTASES TO LYMPH NODES [None]
  - METASTASIS [None]
  - MULTI-ORGAN FAILURE [None]
  - NEPHRITIS [None]
  - NEPHROSCLEROSIS [None]
  - PERITONITIS [None]
  - PULMONARY CONGESTION [None]
  - PULMONARY HAEMORRHAGE [None]
  - PULMONARY OEDEMA [None]
  - PULMONARY TUBERCULOSIS [None]
  - PYREXIA [None]
  - RENAL FAILURE [None]
  - SEPSIS [None]
  - SKIN ULCER [None]
  - SPLENOMEGALY [None]
  - SUBCUTANEOUS ABSCESS [None]
  - TUMOUR HAEMORRHAGE [None]
  - TUMOUR NECROSIS [None]
